FAERS Safety Report 19230416 (Version 1)
Quarter: 2021Q2

REPORT INFORMATION
  Report Type: Spontaneous
  Country: US (occurrence: US)
  Receive Date: 20210507
  Receipt Date: 20210507
  Transmission Date: 20210717
  Serious: No
  Sender: FDA-Public Use
  Company Number: US-AMGEN-USASP2021067501

PATIENT
  Age: 47 Year
  Sex: Female

DRUGS (10)
  1. PENTAZOCINE [Concomitant]
     Active Substance: PENTAZOCINE
     Dosage: 50?0.5 MILLIGRAM
  2. OMEPRAZOLE. [Concomitant]
     Active Substance: OMEPRAZOLE
     Dosage: UNK
  3. ATORVASTATIN [Concomitant]
     Active Substance: ATORVASTATIN
     Dosage: 40 MILLIGRAM
  4. VITAMIN D [COLECALCIFEROL] [Concomitant]
     Active Substance: CHOLECALCIFEROL
     Dosage: 2000 UNIT
  5. ENBREL [Suspect]
     Active Substance: ETANERCEPT
     Indication: MIGRAINE
     Dosage: 50 MILLIGRAM, QWK
     Route: 058
  6. PAXIL [PIROXICAM] [Concomitant]
     Active Substance: PIROXICAM
     Dosage: 20 MILLIGRAM
  7. VITAMIN E [Concomitant]
     Active Substance: .ALPHA.-TOCOPHEROL
     Dosage: 1000 UNIT
  8. MORTIN [Concomitant]
     Active Substance: SULFAMETHOXAZOLE\TRIMETHOPRIM
     Dosage: 200 MILLIGRAM
  9. ZINC. [Concomitant]
     Active Substance: ZINC
     Dosage: 100 MILLIGRAM
  10. VITAMIN C [Concomitant]
     Active Substance: ASCORBIC ACID
     Dosage: 1000 MILLIGRAM

REACTIONS (2)
  - Off label use [Unknown]
  - Injection site pain [Unknown]
